FAERS Safety Report 9764764 (Version 1)
Quarter: 2013Q4

REPORT INFORMATION
  Report Type: Spontaneous
  Country: US (occurrence: US)
  Receive Date: 20131217
  Receipt Date: 20131217
  Transmission Date: 20140711
  Serious: No
  Sender: FDA-Public Use
  Company Number: US-BIOGENIDEC-2013BI115642

PATIENT
  Age: 51 Year
  Sex: Female

DRUGS (11)
  1. TECFIDERA [Suspect]
     Indication: MULTIPLE SCLEROSIS
     Route: 048
     Dates: start: 201308
  2. SINGULAIR [Concomitant]
  3. LYRICA [Concomitant]
  4. SYNTHROID [Concomitant]
  5. SIMVASTATIN [Concomitant]
  6. ISORSIBIDE [Concomitant]
  7. BUTABIL-ASA-CAFFEINE [Concomitant]
  8. BACLOFEN [Concomitant]
  9. ATELVIA [Concomitant]
  10. ASPIRIN [Concomitant]
  11. VITAMIN B12 [Concomitant]

REACTIONS (3)
  - Somnolence [Unknown]
  - Colonoscopy [Unknown]
  - Gastrointestinal disorder [Unknown]
